FAERS Safety Report 6936095-0 (Version None)
Quarter: 2010Q3

REPORT INFORMATION
  Report Type: 
  Country: None (occurrence: None)
  Receive Date: 20100823
  Receipt Date: 20100812
  Transmission Date: 20110219
  Serious: Yes (Death)
  Sender: FDA-Public Use
  Company Number: CA-NOVOPROD-313071

PATIENT

DRUGS (2)
  1. NIASTASE [Suspect]
     Indication: SALVAGE THERAPY
  2. NIASTASE [Suspect]
     Indication: TRAUMATIC LUNG INJURY

REACTIONS (1)
  - DEATH [None]
